FAERS Safety Report 7060690-4 (Version None)
Quarter: 2010Q4

REPORT INFORMATION
  Report Type: 
  Country: None (occurrence: None)
  Receive Date: 20101025
  Receipt Date: 20101020
  Transmission Date: 20110411
  Serious: Yes (Death)
  Sender: FDA-Public Use
  Company Number: GR-ROCHE-735132

PATIENT
  Sex: Male
  Weight: 65 kg

DRUGS (29)
  1. METHOXY POLYETHYLENE GLYCOL-EPOETIN BETA [Suspect]
     Dosage: FORM: PFS.
     Route: 058
     Dates: start: 20090625
  2. METHOXY POLYETHYLENE GLYCOL-EPOETIN BETA [Suspect]
     Dosage: DOSE REPORTED AS 270 MCG/0.3 ML, FORM REPORTED AS PFS
     Route: 058
     Dates: start: 20100625
  3. METHOXY POLYETHYLENE GLYCOL-EPOETIN BETA [Suspect]
     Dosage: DOSE : 300 MCG/0.6ML, INCREASED, LAST DOSE PRIOR TO SAE:20 SEPTEMBER 2010
     Route: 058
     Dates: start: 20100721
  4. QUINAPRIL [Concomitant]
     Dates: start: 20041202
  5. QUINAPRIL [Concomitant]
     Dates: end: 20101017
  6. AMLODIPINE [Concomitant]
     Dates: start: 20051109
  7. CARVEDILOL [Concomitant]
     Dates: start: 20080902, end: 20101017
  8. VALSARTAN [Concomitant]
     Dates: start: 20030313, end: 20100602
  9. VALSARTAN [Concomitant]
     Dates: end: 20101017
  10. FUROSEMIDE [Concomitant]
     Dates: start: 20080902
  11. TERAZOSIN HCL [Concomitant]
     Dates: start: 20020205
  12. TERAZOSIN HCL [Concomitant]
     Dates: start: 20100205, end: 20101017
  13. IRBESARTAN [Concomitant]
     Dates: start: 20030603
  14. ALFACALCIDOL [Concomitant]
     Dates: start: 20020723, end: 20101017
  15. SEVELAMER [Concomitant]
     Dates: start: 20070626, end: 20101017
  16. CLONIDINE [Concomitant]
     Dates: start: 20100303, end: 20101017
  17. CINACALCET [Concomitant]
     Dates: start: 20090724
  18. CINACALCET [Concomitant]
     Dates: start: 20100303
  19. CINACALCET [Concomitant]
     Dates: end: 20101017
  20. CALCIUM [Concomitant]
     Dosage: REPORTED AS CALCIUM SALTS
     Dates: start: 20090109
  21. FERROUS SULFATE TAB [Concomitant]
     Dates: start: 20090622
  22. MINOXIDIL [Concomitant]
     Dates: start: 20100526
  23. AMLODIPINE/VALSARTAN [Concomitant]
     Dosage: TOTAL DAILY DOSE ; 160MG/10 MG
     Dates: start: 20100623
  24. CINACALCET [Concomitant]
     Dates: start: 20090724
  25. NIFEDIPINE [Concomitant]
     Dates: start: 20100804, end: 20101017
  26. SIMVASTATIN [Concomitant]
     Dates: start: 20100801, end: 20101017
  27. OMEPRAZOLE [Concomitant]
     Dates: start: 20100804, end: 20101017
  28. IRON SUCCINYL-PROTEIN COMPLEX [Concomitant]
     Dosage: DRUG REPORTED AS IRON PROTEIN SUCCINYLATE
     Dates: start: 20100812, end: 20101017
  29. ACID FOLIC [Concomitant]
     Dates: start: 20100816, end: 20101017

REACTIONS (1)
  - DEATH [None]
